FAERS Safety Report 9551641 (Version 1)
Quarter: 2013Q3

REPORT INFORMATION
  Report Type: Spontaneous
  Country: US (occurrence: US)
  Receive Date: 20130925
  Receipt Date: 20130925
  Transmission Date: 20140515
  Serious: No
  Sender: FDA-Public Use
  Company Number: US-009507513-1309USA011529

PATIENT
  Age: 64 Year
  Sex: Male

DRUGS (4)
  1. VICTRELIS [Suspect]
     Indication: HEPATITIS C
     Dosage: 800 MG, TID (4 CAPULES THREE TIMES A DAY 8 HOURS APART)
     Route: 048
     Dates: start: 20130507
  2. PEGINTRON [Suspect]
     Dosage: UNK
  3. RIBASPHERE [Suspect]
     Dosage: UNK
  4. PROCRIT [Concomitant]
     Dosage: UNK

REACTIONS (1)
  - Hypoaesthesia [Not Recovered/Not Resolved]
